FAERS Safety Report 19728951 (Version 2)
Quarter: 2021Q3

REPORT INFORMATION
  Report Type: Spontaneous
  Country: HR (occurrence: HR)
  Receive Date: 20210820
  Receipt Date: 20210909
  Transmission Date: 20211014
  Serious: Yes (Other)
  Sender: FDA-Public Use
  Company Number: HR-MYLANLABS-2021M1053263

PATIENT
  Age: 56 Year
  Sex: Female

DRUGS (3)
  1. RIBOCICLIB. [Suspect]
     Active Substance: RIBOCICLIB
     Dosage: 600 MILLIGRAM
     Route: 065
     Dates: start: 20210105
  2. RIBOCICLIB. [Suspect]
     Active Substance: RIBOCICLIB
     Indication: HER2 NEGATIVE BREAST CANCER
     Dosage: UNK
     Route: 065
     Dates: start: 202003
  3. EXEMESTANE. [Suspect]
     Active Substance: EXEMESTANE
     Indication: HER2 NEGATIVE BREAST CANCER
     Dosage: UNK
     Route: 065
     Dates: start: 202003

REACTIONS (2)
  - Hepatic lesion [Unknown]
  - Cytogenetic analysis abnormal [Unknown]

NARRATIVE: CASE EVENT DATE: 202101
